FAERS Safety Report 4280693-2 (Version None)
Quarter: 2004Q1

REPORT INFORMATION
  Report Type: 
  Country: None (occurrence: None)
  Receive Date: 20040127
  Receipt Date: 20040112
  Transmission Date: 20041129
  Serious: Yes (Death)
  Sender: FDA-Public Use
  Company Number: 168511

PATIENT
  Sex: Female

DRUGS (7)
  1. AVONEX [Suspect]
     Indication: MULTIPLE SCLEROSIS
     Dosage: 30 MCG QW IM
     Route: 030
     Dates: start: 19960101, end: 20020801
  2. OXYBUTYNIN [Concomitant]
  3. COPAXONE [Concomitant]
  4. AMBIEN [Concomitant]
  5. BACLOFEN [Concomitant]
  6. ZANTAC [Concomitant]
  7. REBIF [Concomitant]

REACTIONS (5)
  - DILATATION ATRIAL [None]
  - DRUG INEFFECTIVE [None]
  - ELECTROCARDIOGRAM ST SEGMENT ABNORMAL [None]
  - MYOCARDIAL INFARCTION [None]
  - SINUS TACHYCARDIA [None]
